FAERS Safety Report 5151056-2 (Version None)
Quarter: 2006Q4

REPORT INFORMATION
  Report Type: 
  Country: None (occurrence: None)
  Receive Date: 20061114
  Receipt Date: 20061114
  Transmission Date: 20070319
  Serious: Yes (Death, Hospitalization)
  Sender: FDA-Public Use
  Company Number: None

PATIENT
  Sex: Male
  Weight: 117.8 kg

DRUGS (6)
  1. CYCLOPHOSPHAMIDE [Suspect]
     Dosage: 2760 MG
     Dates: end: 20061031
  2. DAUNORUBICIN HCL [Suspect]
     Dosage: 555 MG
     Dates: end: 20061102
  3. DEXAMETHASONE 4MG TAB [Suspect]
     Dosage: 168 MG
     Dates: end: 20061107
  4. G-CSF (FILGRASTIM, AMGEN) [Suspect]
     Dosage: 2880 MCG
     Dates: end: 20061110
  5. ELSPAR [Suspect]
     Dosage: 14000 UNIT
     Dates: end: 20061107
  6. ALLOPURINOL [Suspect]
     Dosage: 3300 MG
     Dates: end: 20061110

REACTIONS (13)
  - BACTERIAL INFECTION [None]
  - BLOOD CULTURE POSITIVE [None]
  - COAGULOPATHY [None]
  - CONDITION AGGRAVATED [None]
  - DISSEMINATED INTRAVASCULAR COAGULATION [None]
  - HAEMODIALYSIS [None]
  - METABOLIC ACIDOSIS [None]
  - MULTI-ORGAN FAILURE [None]
  - NEUTROPENIA [None]
  - RENAL FAILURE ACUTE [None]
  - RESPIRATORY ACIDOSIS [None]
  - RESPIRATORY DISTRESS [None]
  - THROMBOCYTOPENIA [None]
